FAERS Safety Report 21178083 (Version 1)
Quarter: 2022Q3

REPORT INFORMATION
  Report Type: Spontaneous
  Country: FR (occurrence: FR)
  Receive Date: 20220805
  Receipt Date: 20220805
  Transmission Date: 20221026
  Serious: Yes (Hospitalization)
  Sender: FDA-Public Use
  Company Number: FR-ANIPHARMA-2022-FR-000149

PATIENT
  Age: 93 Year
  Sex: Male
  Weight: 74 kg

DRUGS (3)
  1. CANDESARTAN CILEXETIL [Suspect]
     Active Substance: CANDESARTAN CILEXETIL
     Indication: Product used for unknown indication
     Dosage: UNKNOWN / 4 MG DAILY
     Route: 048
  2. ENTRESTO [Suspect]
     Active Substance: SACUBITRIL\VALSARTAN
     Dosage: 24 MG/26 MG, TWICE A DAY
     Route: 048
     Dates: start: 20220624, end: 20220707
  3. FUROSEMIDE [Suspect]
     Active Substance: FUROSEMIDE
     Route: 048
     Dates: end: 20220706

REACTIONS (3)
  - Vertigo [Recovered/Resolved]
  - Malaise [Recovered/Resolved]
  - Hypotension [Recovered/Resolved]

NARRATIVE: CASE EVENT DATE: 20220704
